FAERS Safety Report 7031449-9 (Version None)
Quarter: 2010Q4

REPORT INFORMATION
  Report Type: 
  Country: None (occurrence: None)
  Receive Date: 20101006
  Receipt Date: 20100927
  Transmission Date: 20110411
  Serious: Yes (Other)
  Sender: FDA-Public Use
  Company Number: TR-ELI_LILLY_AND_COMPANY-TR201009007648

PATIENT
  Age: 33 Year
  Sex: Female

DRUGS (4)
  1. HUMULIN R [Suspect]
     Indication: GESTATIONAL DIABETES
     Dosage: 10 U, EACH MORNING
     Route: 058
     Dates: start: 20100725, end: 20100828
  2. HUMULIN R [Suspect]
     Dosage: 12 U, DAILY (1/D)
     Route: 058
     Dates: start: 20100725, end: 20100828
  3. HUMULIN R [Suspect]
     Dosage: 12 U, EACH EVENING
     Route: 058
     Dates: start: 20100725, end: 20100828
  4. HUMULIN R [Suspect]
     Dosage: 6 U, DAILY (1/D)
     Route: 058
     Dates: start: 20100725, end: 20100828

REACTIONS (2)
  - ABORTION SPONTANEOUS [None]
  - DRUG EXPOSURE DURING PREGNANCY [None]
